FAERS Safety Report 9088996 (Version 1)
Quarter: 2013Q1

REPORT INFORMATION
  Report Type: Report from Study
  Country: US (occurrence: US)
  Receive Date: 20130131
  Receipt Date: 20130131
  Transmission Date: 20140127
  Serious: No
  Sender: FDA-Public Use
  Company Number: US-ABBOTT-12P-163-0964111-00

PATIENT
  Age: 68 Year
  Sex: Female

DRUGS (9)
  1. HUMIRA [Suspect]
     Indication: ANKYLOSING SPONDYLITIS
     Route: 058
     Dates: start: 20120724
  2. METHOTREXATE [Concomitant]
     Indication: PRODUCT USED FOR UNKNOWN INDICATION
     Dosage: 2.5MG - 8 PILLS WEEKLY
  3. METHOTREXATE [Concomitant]
     Indication: PRODUCT USED FOR UNKNOWN INDICATION
     Dosage: 2.5MG - 8 PILLS WEEKLY
  4. PREDNISONE [Concomitant]
     Indication: PRODUCT USED FOR UNKNOWN INDICATION
     Dosage: 10MG DAILY
  5. PREDNISONE [Concomitant]
     Dosage: WEANING OFF
     Dates: start: 20120813
  6. LOSARTIN [Concomitant]
     Indication: HYPERTENSION
     Dosage: 100MG DAILY
  7. ASTHMANEX [Concomitant]
     Indication: PRODUCT USED FOR UNKNOWN INDICATION
     Dosage: BID
  8. UNKNOWN RESCUE INHALER [Concomitant]
     Indication: ASTHMA
  9. ALBUTEROL INHALER [Concomitant]
     Indication: PRODUCT USED FOR UNKNOWN INDICATION

REACTIONS (11)
  - Bedridden [Recovering/Resolving]
  - Decreased appetite [Recovering/Resolving]
  - Hypertension [Recovering/Resolving]
  - Injection site haemorrhage [Recovered/Resolved]
  - Arthralgia [Recovering/Resolving]
  - Pain in extremity [Recovering/Resolving]
  - Muscle spasms [Recovering/Resolving]
  - Vomiting [Recovering/Resolving]
  - Hypertension [Recovering/Resolving]
  - Drug ineffective [Not Recovered/Not Resolved]
  - Dyspnoea [Recovering/Resolving]
